FAERS Safety Report 4677284-8 (Version None)
Quarter: 2005Q2

REPORT INFORMATION
  Report Type: 
  Country: None (occurrence: None)
  Receive Date: 20050526
  Receipt Date: 20050526
  Transmission Date: 20051028
  Serious: Yes (Life-Threatening, Hospitalization)
  Sender: FDA-Public Use
  Company Number: None

PATIENT
  Age: 58 Year
  Sex: Male
  Weight: 53 kg

DRUGS (2)
  1. CITALOPRAM [Suspect]
     Indication: DEPRESSION
     Dosage: 80 MG QD (PO)
     Route: 048
     Dates: start: 20050404, end: 20050409
  2. LISINOPRIL [Suspect]
     Indication: HYPERTENSION
     Dosage: 20 MG QD (PO)
     Route: 048

REACTIONS (7)
  - ANGIONEUROTIC OEDEMA [None]
  - HYPERTENSION [None]
  - HYPOCHLORAEMIA [None]
  - HYPOKALAEMIA [None]
  - HYPONATRAEMIA [None]
  - OBSTRUCTIVE AIRWAYS DISORDER [None]
  - TACHYCARDIA [None]
